FAERS Safety Report 4390157-3 (Version None)
Quarter: 2004Q2

REPORT INFORMATION
  Report Type: 
  Country: None (occurrence: None)
  Receive Date: 20040630
  Receipt Date: 20040614
  Transmission Date: 20050107
  Serious: Yes (Hospitalization)
  Sender: FDA-Public Use
  Company Number: DSA_24576_2004

PATIENT
  Age: 64 Year
  Sex: Female

DRUGS (6)
  1. CARDIZEM [Suspect]
     Indication: ANGINA UNSTABLE
     Dosage: 180 MG Q DAY PO
     Route: 048
     Dates: start: 20040303, end: 20040312
  2. TROMBYL [Suspect]
     Indication: ANGINA UNSTABLE
     Dosage: 75 MG Q DAY PO
     Route: 048
     Dates: start: 20040303, end: 20040312
  3. SELOKEN ZOC [Suspect]
     Indication: ANGINA UNSTABLE
     Dosage: 100 MG Q DAY PO
     Route: 048
     Dates: start: 20040303, end: 20040312
  4. SIMVASTATIN [Suspect]
     Indication: ANGINA UNSTABLE
     Dosage: 20 MG Q DAY PO
     Route: 048
     Dates: start: 20040303, end: 20040312
  5. IMDUR [Suspect]
     Indication: ANGINA UNSTABLE
     Dosage: 30 MG Q DAY PO
     Route: 048
     Dates: start: 20040303, end: 20040312
  6. NITROMEX [Concomitant]

REACTIONS (6)
  - C-REACTIVE PROTEIN INCREASED [None]
  - CHEST PAIN [None]
  - NAUSEA [None]
  - PYREXIA [None]
  - RASH GENERALISED [None]
  - WHITE BLOOD CELL COUNT INCREASED [None]
